FAERS Safety Report 9699233 (Version 3)
Quarter: 2015Q3

REPORT INFORMATION
  Report Type: Spontaneous
  Country: US (occurrence: US)
  Receive Date: 20131120
  Receipt Date: 20150803
  Transmission Date: 20151125
  Serious: No
  Sender: FDA-Public Use
  Company Number: US-GILEAD-2008-0014853

PATIENT
  Age: 40 Year
  Sex: Female
  Weight: 88.9 kg

DRUGS (17)
  1. NOVOLIN 70/30 [Concomitant]
     Active Substance: INSULIN HUMAN
     Route: 058
  2. GLUCOPHAGE [Concomitant]
     Active Substance: METFORMIN HYDROCHLORIDE
     Route: 048
  3. LASIX [Concomitant]
     Active Substance: FUROSEMIDE
     Route: 048
  4. VENTOLIN [Concomitant]
     Active Substance: ALBUTEROL SULFATE
     Route: 055
  5. MOTRIN IB [Concomitant]
     Active Substance: IBUPROFEN
     Dosage: PRN
     Route: 048
  6. PULMICORT TURBUHALER [Concomitant]
     Active Substance: BUDESONIDE
     Dosage: PRN
     Route: 055
  7. IPRATROPIUM [Concomitant]
     Active Substance: IPRATROPIUM
     Route: 055
  8. LETAIRIS [Suspect]
     Active Substance: AMBRISENTAN
     Indication: PULMONARY ARTERIAL HYPERTENSION
     Route: 048
  9. REVATIO [Concomitant]
     Active Substance: SILDENAFIL CITRATE
     Route: 048
  10. ELAVIL [Concomitant]
     Active Substance: AMITRIPTYLINE HYDROCHLORIDE
     Route: 048
  11. SINGULAIR [Concomitant]
     Active Substance: MONTELUKAST SODIUM
     Route: 048
  12. LANTUS [Concomitant]
     Active Substance: INSULIN GLARGINE
     Dosage: UD
     Route: 058
  13. ACIPHEX [Concomitant]
     Active Substance: RABEPRAZOLE SODIUM
     Route: 048
  14. KLOR-CON [Concomitant]
     Active Substance: POTASSIUM CHLORIDE
     Route: 048
  15. OXYGEN. [Concomitant]
     Active Substance: OXYGEN
     Dosage: CONTINUOUS
     Route: 055
  16. PRINIVIL [Concomitant]
     Active Substance: LISINOPRIL
     Route: 048
  17. LEXAPRO [Concomitant]
     Active Substance: ESCITALOPRAM OXALATE
     Route: 048

REACTIONS (4)
  - Chest pain [Unknown]
  - Haemoglobin decreased [Unknown]
  - Fatigue [Unknown]
  - Palpitations [Unknown]
